FAERS Safety Report 7602320-6 (Version None)
Quarter: 2011Q3

REPORT INFORMATION
  Report Type: 
  Country: None (occurrence: None)
  Receive Date: 20110712
  Receipt Date: 20110701
  Transmission Date: 20111222
  Serious: Yes (Other)
  Sender: FDA-Public Use
  Company Number: BR-BIOGENIDEC-2011BI024770

PATIENT
  Age: 28 Year
  Sex: Female

DRUGS (2)
  1. AVONEX [Suspect]
     Indication: MULTIPLE SCLEROSIS
     Route: 030
     Dates: start: 20071001, end: 20110509
  2. FOLIC ACID [Concomitant]
     Indication: PREGNANCY
     Dates: start: 20110101

REACTIONS (1)
  - PREMATURE SEPARATION OF PLACENTA [None]
